FAERS Safety Report 8339066-5 (Version None)
Quarter: 2012Q2

REPORT INFORMATION
  Report Type: 
  Country: None (occurrence: None)
  Receive Date: 20120502
  Receipt Date: 20120416
  Transmission Date: 20120825
  Serious: Yes (Hospitalization, Disabling, Other)
  Sender: FDA-Public Use
  Company Number: 2012MA004944

PATIENT
  Sex: Female
  Weight: 119.296 kg

DRUGS (71)
  1. HYDROCODONE BITARTRATE AND ACETAMINOPHEN [Concomitant]
  2. LEVOTHYROXINE SODIUM [Concomitant]
  3. MIRALAX [Concomitant]
  4. NABUMETONE [Concomitant]
  5. PAXIL [Concomitant]
  6. SERTRALINE HYDROCHLORIDE [Concomitant]
  7. SUCRALFATE [Concomitant]
  8. ULTRAM [Concomitant]
  9. ACTOS [Concomitant]
  10. ATENOLOL [Concomitant]
  11. ATIVAN [Concomitant]
  12. COMBIVENT [Concomitant]
  13. DETROL LA [Concomitant]
  14. POTASSIUM CHLORIDE [Concomitant]
  15. PROAIR HFA [Concomitant]
  16. SEROQUEL [Concomitant]
  17. TRICOR [Concomitant]
  18. ZITHROMAX [Concomitant]
  19. ALLEGRA [Concomitant]
  20. ARICEPT [Concomitant]
  21. ASPIRIN [Concomitant]
  22. PSEUDOEPHEDRINE HCL/CHLORPHENIRAMINE MALEATE [Concomitant]
  23. DIAZEPAM [Concomitant]
  24. DURAGESIC-100 [Concomitant]
  25. LEVOTHROID [Concomitant]
  26. METOPROLOL TARTRATE [Concomitant]
  27. NEXIUM [Concomitant]
  28. NYSTATIN [Concomitant]
  29. SYNTHROID [Concomitant]
  30. THEOPHYLLINE [Concomitant]
  31. ACIPHEX [Concomitant]
  32. FUROSEMIDE [Concomitant]
  33. POTASSIUM CHLORIDE [Concomitant]
  34. PROTONIX [Concomitant]
  35. ANUCORT-HC [Concomitant]
  36. BETA BLOCKER [Concomitant]
  37. BYETTA [Concomitant]
  38. LASIX [Concomitant]
  39. LOTENSIN [Concomitant]
  40. PRIMIDONE [Concomitant]
  41. METOCLOPRAMIDE [Suspect]
     Indication: NAUSEA
     Dosage: 10 MG;QID;PO
     Route: 048
     Dates: start: 20060621, end: 20090529
  42. METOCLOPRAMIDE [Suspect]
     Indication: GASTROOESOPHAGEAL REFLUX DISEASE
     Dosage: 10 MG;QID;PO
     Route: 048
     Dates: start: 20060621, end: 20090529
  43. ATROVENT [Concomitant]
  44. BENAZEPRIL HYDROCHLORIDE [Concomitant]
  45. CLARINEX [Concomitant]
  46. MIRTAZAPINE [Concomitant]
  47. RANITIDINE [Concomitant]
  48. TOPROL-XL [Concomitant]
  49. VALIUM [Concomitant]
  50. AVELOX [Concomitant]
  51. FEXOFENADINE [Concomitant]
  52. IBUPROFEN [Concomitant]
  53. LIPITOR [Concomitant]
  54. LUNESTA [Concomitant]
  55. LYRICA [Concomitant]
  56. PYRIDINE [Concomitant]
  57. TRAMADOL HYDROCHLORIDE [Concomitant]
  58. ZOLOFT [Concomitant]
  59. ADVAIR DISKUS 100/50 [Concomitant]
  60. ALBUTEROL [Concomitant]
  61. AMBIEN [Concomitant]
  62. AMOXICILLIN [Concomitant]
  63. AVANDIA [Concomitant]
  64. CYMBALTA [Concomitant]
  65. DEPOMEDROL/LIDOCAINE [Concomitant]
  66. FENTANYL CITRATE [Concomitant]
  67. LIDODERM [Concomitant]
  68. LORAZEPAM [Concomitant]
  69. METFORMIN HCL [Concomitant]
  70. PAXIL CR [Concomitant]
  71. ZOLPIDEM [Concomitant]

REACTIONS (62)
  - VOMITING [None]
  - NOCTURIA [None]
  - CONFUSIONAL STATE [None]
  - ASTHENIA [None]
  - GRIP STRENGTH DECREASED [None]
  - PAIN [None]
  - DEHYDRATION [None]
  - SENSORY DISTURBANCE [None]
  - ARTHRALGIA [None]
  - DYSPNOEA [None]
  - INSOMNIA [None]
  - OSTEOARTHRITIS [None]
  - PAIN IN EXTREMITY [None]
  - ABDOMINAL PAIN [None]
  - EAR PAIN [None]
  - BEDRIDDEN [None]
  - VICTIM OF ELDER ABUSE [None]
  - OSTEOPENIA [None]
  - DEPRESSION [None]
  - HYPOAESTHESIA [None]
  - DYSSTASIA [None]
  - GAIT DISTURBANCE [None]
  - MOVEMENT DISORDER [None]
  - BALANCE DISORDER [None]
  - MUSCULAR WEAKNESS [None]
  - ALANINE AMINOTRANSFERASE INCREASED [None]
  - ABDOMINAL HERNIA [None]
  - TREMOR [None]
  - HEART RATE INCREASED [None]
  - RHINORRHOEA [None]
  - UPPER RESPIRATORY TRACT INFECTION [None]
  - FUNGAL SKIN INFECTION [None]
  - LETHARGY [None]
  - AREFLEXIA [None]
  - ASPARTATE AMINOTRANSFERASE INCREASED [None]
  - TENDON RUPTURE [None]
  - ATELECTASIS [None]
  - ANXIETY [None]
  - PHARYNGEAL DISORDER [None]
  - MUSCULOSKELETAL PAIN [None]
  - BACK PAIN [None]
  - DRUG INEFFECTIVE [None]
  - OROPHARYNGEAL PAIN [None]
  - PNEUMONIA [None]
  - DISORIENTATION [None]
  - MEMORY IMPAIRMENT [None]
  - RESPIRATORY DISTRESS [None]
  - SOMNOLENCE [None]
  - MUSCLE ATROPHY [None]
  - POLYNEUROPATHY [None]
  - RESPIRATORY DISORDER [None]
  - RADIUS FRACTURE [None]
  - PHARYNGEAL ERYTHEMA [None]
  - TARDIVE DYSKINESIA [None]
  - AZOTAEMIA [None]
  - SPINAL OSTEOARTHRITIS [None]
  - ULNA FRACTURE [None]
  - WEIGHT DECREASED [None]
  - FAECES DISCOLOURED [None]
  - NAUSEA [None]
  - HYPOPHAGIA [None]
  - CONSTIPATION [None]
